FAERS Safety Report 5716909-2 (Version None)
Quarter: 2008Q2

REPORT INFORMATION
  Report Type: 
  Country: None (occurrence: None)
  Receive Date: 20080424
  Receipt Date: 20080328
  Transmission Date: 20081010
  Serious: No
  Sender: FDA-Public Use
  Company Number: US-BOEHRINGER INGELHEIM GMBH, GERMANY-2008-BP-04858BP

PATIENT
  Age: 56 Year
  Sex: Male

DRUGS (5)
  1. SPIRIVA [Suspect]
     Indication: EMPHYSEMA
     Route: 055
     Dates: start: 20060101
  2. KEPPRA [Concomitant]
     Indication: CONVULSION
     Dates: start: 20080101
  3. MECLIZINE [Concomitant]
  4. NASONEX [Concomitant]
  5. COMBIVENT [Concomitant]

REACTIONS (1)
  - GENERAL PHYSICAL HEALTH DETERIORATION [None]
